FAERS Safety Report 16197391 (Version 1)
Quarter: 2019Q2

REPORT INFORMATION
  Report Type: Spontaneous
  Country: US (occurrence: US)
  Receive Date: 20190413
  Receipt Date: 20190413
  Transmission Date: 20190711
  Serious: Yes (Disabling)
  Sender: FDA-Public Use
  Company Number: None

PATIENT
  Age: 40 Year
  Sex: Male
  Weight: 79.65 kg

DRUGS (1)
  1. FINASTERIDE. [Suspect]
     Active Substance: FINASTERIDE
     Indication: ALOPECIA
     Dosage: ?          QUANTITY:1 TABLET(S);?
     Route: 048

REACTIONS (21)
  - Narcolepsy [None]
  - Product complaint [None]
  - Dizziness [None]
  - Anxiety [None]
  - Muscle spasms [None]
  - Gynaecomastia [None]
  - Disturbance in attention [None]
  - Migraine with aura [None]
  - Fatigue [None]
  - Pain [None]
  - Dry skin [None]
  - Arthralgia [None]
  - Gastrointestinal disorder [None]
  - Hypogonadism male [None]
  - Dyspnoea [None]
  - Prostatomegaly [None]
  - Rectal haemorrhage [None]
  - Nocturia [None]
  - Colitis [None]
  - Feeling abnormal [None]
  - Semen viscosity abnormal [None]

NARRATIVE: CASE EVENT DATE: 20170201
